FAERS Safety Report 7022075-6 (Version None)
Quarter: 2010Q3

REPORT INFORMATION
  Report Type: 
  Country: None (occurrence: None)
  Receive Date: 20100930
  Receipt Date: 20100920
  Transmission Date: 20110219
  Serious: Yes (Hospitalization)
  Sender: FDA-Public Use
  Company Number: NL-NOVOPROD-313422

PATIENT
  Age: 55 Year
  Sex: Male
  Weight: 122 kg

DRUGS (4)
  1. VICTOZA [Suspect]
     Indication: TYPE 2 DIABETES MELLITUS
     Dosage: 6 MG, QD
     Dates: start: 20100810, end: 20100815
  2. METFORMIN [Concomitant]
  3. SIMVASTATIN [Concomitant]
  4. PAROXETIN                          /00830801/ [Concomitant]

REACTIONS (6)
  - ACIDOSIS [None]
  - DEHYDRATION [None]
  - DEPRESSED LEVEL OF CONSCIOUSNESS [None]
  - DIARRHOEA [None]
  - NAUSEA [None]
  - VOMITING [None]
